FAERS Safety Report 8365869-7 (Version None)
Quarter: 2012Q2

REPORT INFORMATION
  Report Type: 
  Country: None (occurrence: None)
  Receive Date: 20120515
  Receipt Date: 20120503
  Transmission Date: 20120825
  Serious: Yes (Death, Disabling, Other)
  Sender: FDA-Public Use
  Company Number: 2012MA005698

PATIENT
  Age: 62 Year
  Sex: Male

DRUGS (2)
  1. CISPLATIN [Concomitant]
  2. GEMCITABINE HYDROCHLORIDE [Suspect]
     Indication: SQUAMOUS CELL CARCINOMA
     Dosage: 1200 MG/MM^2;IV
     Route: 042

REACTIONS (4)
  - ARTERIAL THROMBOSIS [None]
  - AMPUTATION [None]
  - INTESTINAL ISCHAEMIA [None]
  - PERIPHERAL ISCHAEMIA [None]
